FAERS Safety Report 22077786 (Version 1)
Quarter: 2023Q1

REPORT INFORMATION
  Report Type: Report from Study
  Country: US (occurrence: US)
  Receive Date: 20230309
  Receipt Date: 20230309
  Transmission Date: 20230417
  Serious: Yes (Disabling, Other)
  Sender: FDA-Public Use
  Company Number: US-002147023-NVSC2023US051646

PATIENT
  Sex: Male

DRUGS (1)
  1. ENTRESTO [Suspect]
     Active Substance: SACUBITRIL\VALSARTAN
     Indication: Cardiac failure
     Dosage: 1 DOSAGE FORM, TID (THREE TIMES A DAY)
     Route: 048

REACTIONS (4)
  - Ejection fraction decreased [Unknown]
  - Diabetes mellitus [Unknown]
  - Dyspnoea [Unknown]
  - Product use issue [Unknown]
